FAERS Safety Report 7737923-1 (Version None)
Quarter: 2011Q3

REPORT INFORMATION
  Report Type: 
  Country: None (occurrence: None)
  Receive Date: 20110908
  Receipt Date: 20110906
  Transmission Date: 20111222
  Serious: Yes (Death, Hospitalization)
  Sender: FDA-Public Use
  Company Number: PHEH2011US03490

PATIENT
  Sex: Male
  Weight: 67.12 kg

DRUGS (2)
  1. EXJADE [Suspect]
     Indication: IRON OVERLOAD
     Dosage: 20 MG/KG
     Route: 048
     Dates: start: 20080214
  2. EXJADE [Suspect]
     Dosage: 1500 MG, QD
     Route: 048
     Dates: start: 20080422

REACTIONS (5)
  - SICKLE CELL ANAEMIA WITH CRISIS [None]
  - SEPSIS [None]
  - PYREXIA [None]
  - CARDIAC ARREST [None]
  - HYPOTENSION [None]
